FAERS Safety Report 8877637 (Version 1)
Quarter: 2012Q4

REPORT INFORMATION
  Report Type: Spontaneous
  Country: US (occurrence: None)
  Receive Date: 20121026
  Receipt Date: 20121026
  Transmission Date: 20130627
  Serious: Yes (Other)
  Sender: FDA-Public Use
  Company Number: AUR-APL-2012-04512

PATIENT
  Sex: Female

DRUGS (3)
  1. RIBAVIRIN [Suspect]
     Indication: HEPATITIS C
     Dosage: (1200 mg, 1 D) , Unknown
  2. PEGASYS [Suspect]
     Indication: HEPATITIS C
     Dosage: (180 mcg) , Unknown
  3. TELAPREVIR [Suspect]
     Indication: HEPATITIS C
     Dosage: 2250 mg (750 mg, 1 in 8 hr), Unknown

REACTIONS (2)
  - Rash maculo-papular [None]
  - Rash pruritic [None]
